FAERS Safety Report 15991105 (Version 1)
Quarter: 2019Q1

REPORT INFORMATION
  Report Type: Spontaneous
  Country: AT (occurrence: AT)
  Receive Date: 20190221
  Receipt Date: 20190221
  Transmission Date: 20190418
  Serious: Yes (Other)
  Sender: FDA-Public Use
  Company Number: AT-TOLMAR, INC.-TOLG20190060

PATIENT
  Age: 75 Year
  Sex: Female

DRUGS (1)
  1. IMIQUIMOD. [Suspect]
     Active Substance: IMIQUIMOD
     Indication: BASAL CELL CARCINOMA
     Dosage: UNKNOWN
     Route: 061
     Dates: start: 201604, end: 201606

REACTIONS (8)
  - Dermoid cyst [Unknown]
  - Local reaction [Unknown]
  - Erythema [Unknown]
  - Hyperkeratosis [Unknown]
  - Product use in unapproved indication [None]
  - Skin lesion [Unknown]
  - Skin exfoliation [Unknown]
  - Scab [Unknown]

NARRATIVE: CASE EVENT DATE: 201604
